FAERS Safety Report 6793046-X (Version None)
Quarter: 2010Q2

REPORT INFORMATION
  Report Type: 
  Country: None (occurrence: None)
  Receive Date: 20100624
  Receipt Date: 20081106
  Transmission Date: 20101027
  Serious: No
  Sender: FDA-Public Use
  Company Number: US-PFIZER INC-2008094000

PATIENT
  Sex: Female
  Weight: 105.23 kg

DRUGS (2)
  1. GLYNASE [Suspect]
     Indication: DIABETES MELLITUS
     Dates: start: 20081001, end: 20081001
  2. ANTIHYPERTENSIVES [Concomitant]
     Indication: HYPERTENSION

REACTIONS (3)
  - DIZZINESS [None]
  - GASTROOESOPHAGEAL REFLUX DISEASE [None]
  - MALAISE [None]
